FAERS Safety Report 9171220 (Version 3)
Quarter: 2014Q1

REPORT INFORMATION
  Report Type: Spontaneous
  Country: GB (occurrence: GB)
  Receive Date: 20130319
  Receipt Date: 20140310
  Transmission Date: 20141002
  Serious: Yes (Disabling)
  Sender: FDA-Public Use
  Company Number: GB-JNJFOC-20130309144

PATIENT
  Age: 78 Year
  Sex: Male
  Weight: 82 kg

DRUGS (6)
  1. TRAMADOL HYDROCHLORIDE [Suspect]
     Indication: PAIN
     Route: 048
     Dates: start: 20130206
  2. LANSOPRAZOLE [Suspect]
     Indication: GASTROINTESTINAL DISORDER
     Route: 048
     Dates: start: 20130207
  3. APIXABAN [Suspect]
     Indication: DEEP VEIN THROMBOSIS
     Route: 048
     Dates: start: 20130206, end: 20130216
  4. IBUPROFEN [Suspect]
     Indication: PAIN
     Route: 048
     Dates: start: 20130206
  5. PARACETAMOL [Suspect]
     Indication: PAIN
     Route: 048
     Dates: start: 20130206
  6. LACTULOSE [Suspect]
     Indication: PRODUCT USED FOR UNKNOWN INDICATION
     Route: 048
     Dates: start: 20130206

REACTIONS (3)
  - Jaundice [Not Recovered/Not Resolved]
  - Wound haematoma [Not Recovered/Not Resolved]
  - Wound decomposition [Not Recovered/Not Resolved]
